FAERS Safety Report 5000552-7 (Version None)
Quarter: 2006Q2

REPORT INFORMATION
  Report Type: 
  Country: None (occurrence: None)
  Receive Date: 20060512
  Receipt Date: 20051027
  Transmission Date: 20061013
  Serious: No
  Sender: FDA-Public Use
  Company Number: US-BRISTOL-MYERS SQUIBB COMPANY-13159793

PATIENT
  Age: 28 Year
  Sex: Female

DRUGS (5)
  1. CYTOXAN [Suspect]
     Indication: BREAST CANCER
     Route: 042
  2. DOXORUBICIN [Concomitant]
     Indication: BREAST CANCER
  3. KYTRIL [Concomitant]
     Indication: PREMEDICATION
  4. DEXAMETHASONE [Concomitant]
     Indication: PREMEDICATION
  5. EMEND [Concomitant]
     Indication: PREMEDICATION

REACTIONS (1)
  - VISION BLURRED [None]
